FAERS Safety Report 6667927-1 (Version None)
Quarter: 2010Q2

REPORT INFORMATION
  Report Type: 
  Country: None (occurrence: None)
  Receive Date: 20100401
  Receipt Date: 20100322
  Transmission Date: 20101027
  Serious: Yes (Life-Threatening)
  Sender: FDA-Public Use
  Company Number: AU-SOLVAY-00310001849

PATIENT
  Age: 71 Year
  Sex: Male

DRUGS (4)
  1. FLUVOXAMINE MALEATE [Suspect]
     Indication: DRUG USE FOR UNKNOWN INDICATION
  2. FLOXACILLIN SODIUM [Suspect]
     Indication: DRUG USE FOR UNKNOWN INDICATION
     Dosage: 8 GRAMS INTRAVENOUS
     Route: 042
     Dates: start: 20100106, end: 20100125
  3. PRAVASTATIN SODIUM [Suspect]
     Indication: DRUG USE FOR UNKNOWN INDICATION
     Dates: start: 20091216, end: 20100202
  4. CEPHAZOLIN SODIUM (CEPHAZOLIN SODIUM) [Concomitant]

REACTIONS (2)
  - HEPATITIS [None]
  - INTERNATIONAL NORMALISED RATIO INCREASED [None]
